APPROVED DRUG PRODUCT: SODIUM CHLORIDE 23.4%
Active Ingredient: SODIUM CHLORIDE
Strength: 400MEQ/100ML (4MEQ/ML)
Dosage Form/Route: SOLUTION;INTRAVENOUS
Application: N018897 | Product #003 | TE Code: AP
Applicant: HOSPIRA INC
Approved: Jun 18, 2020 | RLD: Yes | RS: Yes | Type: RX